FAERS Safety Report 5637664-0 (Version None)
Quarter: 2008Q1

REPORT INFORMATION
  Report Type: 
  Country: None (occurrence: None)
  Receive Date: 20080219
  Receipt Date: 20080204
  Transmission Date: 20080703
  Serious: Yes (Death)
  Sender: FDA-Public Use
  Company Number: 2008-01255

PATIENT
  Age: 89 Year
  Sex: Female

DRUGS (6)
  1. AMLODIPINE BESYLATE [Suspect]
  2. BENAZEPRIL HCL [Suspect]
  3. HYDROCODONE BITARTRATE/ACETAMINOPHEN UNKNOWN STRENGTH (WATSON)(ACETAMI [Suspect]
  4. ALPRAZOLAM [Suspect]
  5. CITALOPRAM HYDROBROMIDE [Suspect]
  6. NITRATE, LONG-ACTING [Suspect]

REACTIONS (1)
  - DEATH [None]
